FAERS Safety Report 15259429 (Version 2)
Quarter: 2018Q3

REPORT INFORMATION
  Report Type: Report from Study
  Country: None (occurrence: US)
  Receive Date: 20180809
  Receipt Date: 20180817
  Transmission Date: 20181010
  Serious: Yes (Other)
  Sender: FDA-Public Use
  Company Number: US-ABBVIE-18S-163-2446236-00

PATIENT
  Age: 21 Year
  Sex: Female
  Weight: 92.16 kg

DRUGS (1)
  1. LUPRON [Suspect]
     Active Substance: LEUPROLIDE ACETATE
     Indication: ENDOMETRIOSIS
     Dosage: PT DOES NOT REMEMBER DOSE OF MEDICATION
     Route: 030
     Dates: start: 201201, end: 201204

REACTIONS (4)
  - Feeling cold [Recovered/Resolved]
  - Amnesia [Recovered/Resolved]
  - Feeling abnormal [Not Recovered/Not Resolved]
  - Fatigue [Recovered/Resolved]

NARRATIVE: CASE EVENT DATE: 201201
